FAERS Safety Report 7816548-3 (Version None)
Quarter: 2011Q4

REPORT INFORMATION
  Report Type: 
  Country: None (occurrence: None)
  Receive Date: 20111017
  Receipt Date: 20111011
  Transmission Date: 20120403
  Serious: Yes (Other)
  Sender: FDA-Public Use
  Company Number: DE-PFIZER INC-2011237427

PATIENT
  Age: 40 Year
  Sex: Male

DRUGS (1)
  1. VIAGRA [Suspect]
     Dosage: INTERMITTENTLY, BUT MULTIPLE PER WEEK (UNKNOWN DOSE)

REACTIONS (2)
  - HAEMANGIOMA OF LIVER [None]
  - PORTAL VEIN THROMBOSIS [None]
